FAERS Safety Report 8904670 (Version 6)
Quarter: 2016Q3

REPORT INFORMATION
  Report Type: Spontaneous
  Country: US (occurrence: US)
  Receive Date: 20121112
  Receipt Date: 20160726
  Transmission Date: 20161109
  Serious: Yes (Hospitalization, Disabling, Other)
  Sender: FDA-Public Use
  Company Number: US-009507513-1211USA004393

PATIENT
  Sex: Male

DRUGS (9)
  1. ALENDRONATE SODIUM. [Suspect]
     Active Substance: ALENDRONATE SODIUM
     Indication: OSTEOPOROSIS
     Dosage: 70 MG, UNK
     Route: 048
  2. FOSAMAX [Suspect]
     Active Substance: ALENDRONATE SODIUM
     Indication: OSTEOPOROSIS
     Dosage: UNK
     Route: 048
     Dates: start: 199911
  3. ALENDRONATE SODIUM. [Suspect]
     Active Substance: ALENDRONATE SODIUM
     Indication: OSTEOPOROSIS
     Dosage: 70 MG, UNK
     Route: 048
  4. HYDROCHLOROTHIAZIDE. [Concomitant]
     Active Substance: HYDROCHLOROTHIAZIDE
     Indication: HYPERTENSION
     Dosage: 12.5 MG, UNK
     Route: 065
     Dates: start: 20060421
  5. ALTACE [Concomitant]
     Active Substance: RAMIPRIL
     Indication: HYPERTENSION
     Dosage: 5 MG, QD
     Route: 065
     Dates: start: 200405, end: 201103
  6. FOSAMAX [Suspect]
     Active Substance: ALENDRONATE SODIUM
     Dosage: 70 MG, QW
     Route: 048
     Dates: start: 20021216, end: 20110421
  7. LUPRON [Concomitant]
     Active Substance: LEUPROLIDE ACETATE
     Indication: RADICAL PROSTATECTOMY
     Dosage: 22.5 MG, QD
     Route: 058
     Dates: start: 1992
  8. HORMONES (UNSPECIFIED) [Concomitant]
     Active Substance: UNSPECIFIED INGREDIENT
     Indication: PRODUCT USED FOR UNKNOWN INDICATION
     Route: 065
  9. ATENOLOL. [Concomitant]
     Active Substance: ATENOLOL
     Indication: HYPERTENSION
     Dosage: UNK
     Route: 065
     Dates: start: 2002, end: 200611

REACTIONS (26)
  - Fall [Unknown]
  - Anaemia [Unknown]
  - Restrictive cardiomyopathy [Unknown]
  - Femur fracture [Not Recovered/Not Resolved]
  - Syncope [Unknown]
  - Osteoarthritis [Unknown]
  - Mitral valve incompetence [Unknown]
  - Aortic valve incompetence [Unknown]
  - Foot deformity [Unknown]
  - Enchondromatosis [Unknown]
  - Dementia [Unknown]
  - Peripheral swelling [Unknown]
  - Foot fracture [Unknown]
  - Dyspnoea exertional [Unknown]
  - Bone infarction [Unknown]
  - Atrioventricular block complete [Unknown]
  - Skin lesion [Unknown]
  - High turnover osteopathy [Not Recovered/Not Resolved]
  - Hypokalaemia [Unknown]
  - Blood cholesterol increased [Unknown]
  - Fluid retention [Unknown]
  - Dyspnoea [Not Recovered/Not Resolved]
  - Arteriosclerosis [Unknown]
  - Open reduction of fracture [Not Recovered/Not Resolved]
  - Neuropathy peripheral [Unknown]
  - Drug ineffective [Unknown]

NARRATIVE: CASE EVENT DATE: 2002
